FAERS Safety Report 15284521 (Version 1)
Quarter: 2018Q3

REPORT INFORMATION
  Report Type: Spontaneous
  Country: AX (occurrence: AX)
  Receive Date: 20180801
  Receipt Date: 20180801
  Transmission Date: 20181010
  Serious: Yes (Disabling)
  Sender: FDA-Public Use
  Company Number: None

PATIENT
  Age: 73 Year
  Sex: Female
  Weight: 49.95 kg

DRUGS (6)
  1. BIOTIN [Concomitant]
     Active Substance: BIOTIN
  2. SYNTHROID [Concomitant]
     Active Substance: LEVOTHYROXINE SODIUM
  3. MELOXICAM. [Concomitant]
     Active Substance: MELOXICAM
  4. VITAMIN C [Concomitant]
     Active Substance: ASCORBIC ACID
  5. GENERIC??LEVOFLOXACIN [Suspect]
     Active Substance: LEVOFLOXACIN
     Indication: SINUSITIS
     Dosage: ?          QUANTITY:10 CAPSULE(S);?
     Route: 048
     Dates: start: 20180720, end: 20180724
  6. XALATAN [Concomitant]
     Active Substance: LATANOPROST

REACTIONS (5)
  - Arthralgia [None]
  - Tendon pain [None]
  - Pain in extremity [None]
  - Myalgia [None]
  - Asthenia [None]

NARRATIVE: CASE EVENT DATE: 20180725
